FAERS Safety Report 9630747 (Version 2)
Quarter: 2014Q1

REPORT INFORMATION
  Report Type: Spontaneous
  Country: GB (occurrence: None)
  Receive Date: 20131011
  Receipt Date: 20140129
  Transmission Date: 20141002
  Serious: Yes (Disabling)
  Sender: FDA-Public Use
  Company Number: AUR-APL-2013-08330

PATIENT
  Age: 34 Year
  Sex: Female
  Weight: 92.07 kg

DRUGS (2)
  1. LAMOTRIGINE [Suspect]
     Indication: BIPOLAR II DISORDER
     Dosage: (50 MG, 1 IN 1 D)
     Route: 048
     Dates: start: 201307
  2. OMEGA-3 FISH OIL [Concomitant]

REACTIONS (15)
  - Mood swings [None]
  - Lethargy [None]
  - Tearfulness [None]
  - Pain [None]
  - Headache [None]
  - Intentional self-injury [None]
  - Drug ineffective [None]
  - Headache [None]
  - Anger [None]
  - Crying [None]
  - Suicidal ideation [None]
  - Depressed mood [None]
  - Aphasia [None]
  - Abnormal behaviour [None]
  - Energy increased [None]
